FAERS Safety Report 20124757 (Version 1)
Quarter: 2021Q4

REPORT INFORMATION
  Report Type: Spontaneous
  Country: US (occurrence: None)
  Receive Date: 20211126
  Receipt Date: 20211126
  Transmission Date: 20220303
  Serious: Yes (Other)
  Sender: FDA-Public Use
  Company Number: None

PATIENT
  Age: 47 Year
  Sex: Female
  Weight: 76.5 kg

DRUGS (2)
  1. BUPRENORPHINE AND NALOXONE [Suspect]
     Active Substance: BUPRENORPHINE HYDROCHLORIDE\NALOXONE HYDROCHLORIDE
     Indication: Drug dependence
     Dosage: OTHER QUANTITY : 1 1;?FREQUENCY : TWICE A DAY;?
     Route: 060
     Dates: start: 20210922
  2. SUBOXONE [Concomitant]
     Active Substance: BUPRENORPHINE HYDROCHLORIDE\NALOXONE HYDROCHLORIDE

REACTIONS (16)
  - Influenza like illness [None]
  - Feeling abnormal [None]
  - Product substitution issue [None]
  - Product physical issue [None]
  - Product physical issue [None]
  - Rhinorrhoea [None]
  - Abdominal discomfort [None]
  - Arthralgia [None]
  - Bone pain [None]
  - Pain in extremity [None]
  - Nasopharyngitis [None]
  - Chills [None]
  - Influenza like illness [None]
  - Poor quality sleep [None]
  - Nightmare [None]
  - Drug dependence [None]

NARRATIVE: CASE EVENT DATE: 20211027
